FAERS Safety Report 7630751-7 (Version None)
Quarter: 2011Q3

REPORT INFORMATION
  Report Type: 
  Country: None (occurrence: None)
  Receive Date: 20110722
  Receipt Date: 20110712
  Transmission Date: 20111222
  Serious: Yes (Death)
  Sender: FDA-Public Use
  Company Number: NL-GENENTECH-321565

PATIENT
  Sex: Male
  Weight: 79 kg

DRUGS (17)
  1. RITUXIMAB [Suspect]
     Dosage: 750 MG, UNK
     Route: 042
     Dates: start: 20100717
  2. METHOTREXATE [Suspect]
     Dosage: 6000 MG, UNK
     Route: 042
     Dates: start: 20100727
  3. DEXAMETHASONE [Suspect]
     Indication: B-CELL LYMPHOMA
     Dosage: 40 MG, UNK
     Route: 048
     Dates: start: 20100611
  4. RITUXIMAB [Suspect]
     Indication: B-CELL LYMPHOMA
     Dosage: 10 MG, UNK
     Route: 037
     Dates: start: 20100610
  5. CISPLATIN [Suspect]
     Indication: B-CELL LYMPHOMA
     Dosage: 100 MG, UNK
     Route: 042
     Dates: start: 20100611
  6. CISPLATIN [Suspect]
     Dosage: 100 MG, UNK
     Route: 042
     Dates: start: 20100713
  7. FOLATE/THIAMINE [Concomitant]
     Dosage: 30 MG, UNK
     Route: 042
     Dates: start: 20100728
  8. METHOTREXATE [Suspect]
     Indication: B-CELL LYMPHOMA
     Dosage: 6000 MG, UNK
     Route: 042
     Dates: start: 20100625
  9. FOLATE/THIAMINE [Concomitant]
     Indication: PROPHYLAXIS
     Dosage: 30 MG, UNK
     Route: 042
     Dates: start: 20100626
  10. DI-ADRESON-F [Concomitant]
     Dosage: 25 MG, UNK
     Route: 037
     Dates: start: 20100619
  11. CYTARABINE [Suspect]
     Indication: B-CELL LYMPHOMA
     Dosage: 4000 MG, UNK
     Route: 042
     Dates: start: 20100612
  12. DI-ADRESON-F [Concomitant]
     Indication: PROPHYLAXIS
     Dosage: 25 MG, UNK
     Route: 037
     Dates: start: 20100610
  13. RITUXIMAB [Suspect]
     Dosage: 750 MG, UNK
     Route: 042
     Dates: start: 20100615
  14. METHOTREXATE [Suspect]
     Dosage: 12 MG, UNK
     Route: 037
     Dates: start: 20100719
  15. CYTARABINE [Suspect]
     Dosage: 40 MG, UNK
     Route: 037
     Dates: start: 20100719
  16. DEXAMETHASONE [Suspect]
     Dosage: 40 MG, UNK
     Route: 042
     Dates: start: 20100713
  17. CYTARABINE [Suspect]
     Dosage: 4000 MG, UNK
     Route: 042
     Dates: start: 20100714

REACTIONS (1)
  - DEATH [None]
